FAERS Safety Report 24321608 (Version 3)
Quarter: 2024Q4

REPORT INFORMATION
  Report Type: Report from Study
  Country: CO (occurrence: CO)
  Receive Date: 20240916
  Receipt Date: 20241111
  Transmission Date: 20250114
  Serious: Yes (Hospitalization)
  Sender: HELSINN HEALTHCARE
  Company Number: CO-HBP-2024CO031231

PATIENT
  Age: 77 Year
  Sex: Male
  Weight: 108 kg

DRUGS (2)
  1. MECHLORETHAMINE HYDROCHLORIDE [Suspect]
     Active Substance: MECHLORETHAMINE HYDROCHLORIDE
     Indication: Cutaneous T-cell lymphoma
     Dosage: UNK, QD
     Route: 061
     Dates: start: 20240722, end: 20240827
  2. CLOBETASOL [Concomitant]
     Active Substance: CLOBETASOL
     Indication: Cutaneous T-cell lymphoma
     Dosage: UNK, QD

REACTIONS (5)
  - Application site cellulitis [Recovered/Resolved]
  - Application site joint swelling [Recovered/Resolved]
  - Wound complication [Recovering/Resolving]
  - Impaired healing [Recovered/Resolved]
  - Skin wound [Recovering/Resolving]

NARRATIVE: CASE EVENT DATE: 20240827
